FAERS Safety Report 4749561-3 (Version None)
Quarter: 2005Q3

REPORT INFORMATION
  Report Type: 
  Country: None (occurrence: None)
  Receive Date: 20050822
  Receipt Date: 20050804
  Transmission Date: 20060218
  Serious: Yes (Other)
  Sender: FDA-Public Use
  Company Number: US-GLAXOSMITHKLINE-A0568978A

PATIENT
  Age: 21 Year
  Sex: Male

DRUGS (3)
  1. LAMICTAL [Suspect]
     Indication: BIPOLAR DISORDER
     Route: 048
     Dates: start: 20050103
  2. EFFEXOR [Concomitant]
     Indication: DEPRESSION
     Dates: start: 20010212
  3. ADDERALL 30 [Concomitant]
     Indication: ATTENTION DEFICIT/HYPERACTIVITY DISORDER
     Dates: start: 20000810

REACTIONS (1)
  - BLOOD AMYLASE INCREASED [None]
